FAERS Safety Report 16141295 (Version 1)
Quarter: 2019Q2

REPORT INFORMATION
  Report Type: Spontaneous
  Country: US (occurrence: US)
  Receive Date: 20190401
  Receipt Date: 20190401
  Transmission Date: 20190711
  Serious: No
  Sender: FDA-Public Use
  Company Number: US-PFIZER INC-2019128530

PATIENT
  Age: 77 Year
  Sex: Female

DRUGS (4)
  1. COREG [Suspect]
     Active Substance: CARVEDILOL
     Dosage: UNK
  2. BRILINTA [Suspect]
     Active Substance: TICAGRELOR
     Dosage: UNK
  3. NEURONTIN [Suspect]
     Active Substance: GABAPENTIN
     Dosage: UNK
  4. VALIUM [Suspect]
     Active Substance: DIAZEPAM
     Dosage: UNK

REACTIONS (1)
  - Drug hypersensitivity [Unknown]
